FAERS Safety Report 5464646-4 (Version None)
Quarter: 2007Q3

REPORT INFORMATION
  Report Type: 
  Country: None (occurrence: None)
  Receive Date: 20070921
  Receipt Date: 20070910
  Transmission Date: 20080115
  Serious: Yes (Other)
  Sender: FDA-Public Use
  Company Number: DE-MERCK-0709DEU00858

PATIENT
  Sex: Female

DRUGS (1)
  1. FOSAMAX [Suspect]
     Indication: OSTEOPOROSIS
     Route: 048
     Dates: start: 19950101, end: 20070801

REACTIONS (3)
  - CONDITION AGGRAVATED [None]
  - OSTEONECROSIS [None]
  - OSTEOPOROSIS [None]
